FAERS Safety Report 11904724 (Version 5)
Quarter: 2016Q1

REPORT INFORMATION
  Report Type: Spontaneous
  Country: US (occurrence: US)
  Receive Date: 20160108
  Receipt Date: 20160222
  Transmission Date: 20160526
  Serious: Yes (Hospitalization, Other)
  Sender: FDA-Public Use
  Company Number: US-PFIZER INC-2016006468

PATIENT
  Age: 75 Year
  Sex: Female
  Weight: 95 kg

DRUGS (5)
  1. LYRICA [Suspect]
     Active Substance: PREGABALIN
     Dosage: UNK
     Dates: start: 20160123
  2. SYNTHROID [Concomitant]
     Active Substance: LEVOTHYROXINE SODIUM
     Dosage: 1.12 UG, DAILY
  3. LYRICA [Suspect]
     Active Substance: PREGABALIN
     Indication: PAIN IN EXTREMITY
     Dosage: 70 MG, UNK
  4. LYRICA [Suspect]
     Active Substance: PREGABALIN
     Indication: BACK PAIN
     Dosage: 100 MG, 1X/DAY (1 PILL A DAY)
  5. LYRICA [Suspect]
     Active Substance: PREGABALIN
     Dosage: 200 MG, 1X/DAY (2 PILLS A DAY)

REACTIONS (10)
  - Cardiac murmur [Unknown]
  - Disease progression [Unknown]
  - Pain [Not Recovered/Not Resolved]
  - Swelling [Recovered/Resolved]
  - Spinal column stenosis [Unknown]
  - Fluid retention [Recovered/Resolved]
  - Dyspnoea [Unknown]
  - Condition aggravated [Not Recovered/Not Resolved]
  - Heart rate decreased [Unknown]
  - Peripheral swelling [Recovered/Resolved]

NARRATIVE: CASE EVENT DATE: 20160101
